FAERS Safety Report 11787238 (Version 1)
Quarter: 2015Q4

REPORT INFORMATION
  Report Type: Spontaneous
  Country: IN (occurrence: IN)
  Receive Date: 20151130
  Receipt Date: 20151130
  Transmission Date: 20160305
  Serious: Yes (Hospitalization, Other)
  Sender: FDA-Public Use
  Company Number: IN-ACTAVIS-2015-16633

PATIENT
  Age: 29 Year
  Sex: Female

DRUGS (2)
  1. HYDROCORTISONE (UNKNOWN) [Suspect]
     Active Substance: HYDROCORTISONE
     Indication: PLANTAR FASCIITIS
     Dosage: 1 DF, TOTAL
     Route: 051
     Dates: start: 201108
  2. ACECLOFENAC [Concomitant]
     Active Substance: ACECLOFENAC
     Indication: ANALGESIC THERAPY
     Dosage: 100 MG, BID
     Route: 048

REACTIONS (2)
  - Injection site infection [Recovered/Resolved with Sequelae]
  - Compartment syndrome [Recovered/Resolved with Sequelae]
